FAERS Safety Report 7583830-7 (Version None)
Quarter: 2011Q2

REPORT INFORMATION
  Report Type: 
  Country: None (occurrence: None)
  Receive Date: 20110630
  Receipt Date: 20110627
  Transmission Date: 20111010
  Serious: Yes (Hospitalization)
  Sender: FDA-Public Use
  Company Number: IT-ROCHE-786115

PATIENT

DRUGS (1)
  1. BEVACIZUMAB [Suspect]
     Route: 065

REACTIONS (1)
  - INTESTINAL OBSTRUCTION [None]
